FAERS Safety Report 9585838 (Version 1)
Quarter: 2013Q4

REPORT INFORMATION
  Report Type: Spontaneous
  Country: US (occurrence: None)
  Receive Date: 20131002
  Receipt Date: 20131002
  Transmission Date: 20140711
  Serious: Yes (Other)
  Sender: FDA-Public Use
  Company Number: None

PATIENT
  Age: 0 Day
  Sex: Male
  Weight: 1.9 kg

DRUGS (3)
  1. AMPICILLIN [Suspect]
     Indication: SEPSIS NEONATAL
     Route: 042
     Dates: start: 20130916
  2. DEXTROSE [Suspect]
     Indication: PREMATURE BABY
     Dosage: 6.4ML/HR WITH 2ML/KG BOLUSES CONTINOUS
     Route: 042
     Dates: start: 20130916
  3. DEXTROSE [Suspect]
     Indication: DRUG THERAPY
     Dosage: 6.4ML/HR WITH 2ML/KG BOLUSES CONTINOUS
     Route: 042
     Dates: start: 20130916

REACTIONS (3)
  - Pallor [None]
  - Livedo reticularis [None]
  - Catheter site related reaction [None]
